FAERS Safety Report 8137765-1 (Version None)
Quarter: 2012Q1

REPORT INFORMATION
  Report Type: 
  Country: None (occurrence: None)
  Receive Date: 20120215
  Receipt Date: 20120213
  Transmission Date: 20120608
  Serious: Yes (Other)
  Sender: FDA-Public Use
  Company Number: CA-AMGEN-CANSP2012007947

PATIENT
  Age: 55 Year
  Sex: Female

DRUGS (9)
  1. CANDESARTAN CILEXETIL [Concomitant]
     Dosage: 8 MG, UNK
  2. CITALOPRAM HYDROBROMIDE [Concomitant]
     Dosage: 20 MG, UNK
  3. CRESTOR [Concomitant]
     Dosage: 10 MG, UNK
  4. NEXIUM [Concomitant]
     Dosage: 40 MG, UNK
  5. SYNTHROID [Concomitant]
     Dosage: 0.012 MG, UNK
  6. ENBREL [Suspect]
     Indication: PSORIASIS
     Dosage: 50 MG, QWK
     Dates: start: 20120130
  7. METFORMIN HCL [Concomitant]
     Dosage: 500 MG, BID
  8. EZETIMIBE [Concomitant]
     Dosage: 10 MG, UNK
  9. LANTUS [Concomitant]
     Dosage: 80 IU, QD

REACTIONS (5)
  - SWELLING FACE [None]
  - PRURITUS [None]
  - HYPERSENSITIVITY [None]
  - PARAESTHESIA [None]
  - INJECTION SITE REACTION [None]
